FAERS Safety Report 19696786 (Version 1)
Quarter: 2021Q3

REPORT INFORMATION
  Report Type: Spontaneous
  Country: US (occurrence: US)
  Receive Date: 20210813
  Receipt Date: 20210813
  Transmission Date: 20211014
  Serious: Yes (Other)
  Sender: FDA-Public Use
  Company Number: None

PATIENT
  Age: 25 Year
  Sex: Female
  Weight: 66.15 kg

DRUGS (4)
  1. ELECTROLYTE SUPPLEMENT [Concomitant]
  2. SUNOSI [Suspect]
     Active Substance: SOLRIAMFETOL
     Indication: NARCOLEPSY
     Dosage: ?          QUANTITY:1 TABLET(S);?
     Route: 048
  3. MARIJUANA [Concomitant]
     Active Substance: CANNABIS SATIVA SUBSP. INDICA TOP
  4. WOMEN^S MULTIVITAMIN [Concomitant]

REACTIONS (6)
  - Hallucination [None]
  - Delusion [None]
  - Euphoric mood [None]
  - Acute psychosis [None]
  - Gait disturbance [None]
  - Indifference [None]

NARRATIVE: CASE EVENT DATE: 20210810
